FAERS Safety Report 7520695-3 (Version None)
Quarter: 2011Q2

REPORT INFORMATION
  Report Type: 
  Country: None (occurrence: None)
  Receive Date: 20110603
  Receipt Date: 20110530
  Transmission Date: 20111010
  Serious: Yes (Hospitalization)
  Sender: FDA-Public Use
  Company Number: DE-BRISTOL-MYERS SQUIBB COMPANY-15125883

PATIENT
  Age: 67 Year
  Sex: Male
  Weight: 66 kg

DRUGS (2)
  1. XELODA [Suspect]
     Indication: GASTROOESOPHAGEAL CANCER
     Dosage: ON DAY 1-15 FIRST DOSE:29MAR10 RECENT DOSE:19MAY10 NO OF INF:3, DOSE REDUCED:75%
     Route: 048
     Dates: start: 20100329, end: 20100519
  2. CISPLATIN [Suspect]
     Indication: GASTROOESOPHAGEAL CANCER
     Dosage: DAY 1 OF CYCLE FIRST INF:29MAR10 RECENT:11MAY10 NO. OF INF:3 INTER:01JUN10 DOSE REDUCED:75%
     Route: 042
     Dates: start: 20100329

REACTIONS (4)
  - GENERAL PHYSICAL HEALTH DETERIORATION [None]
  - DIARRHOEA [None]
  - DEHYDRATION [None]
  - PROTHROMBIN TIME SHORTENED [None]
